FAERS Safety Report 8341227-6 (Version None)
Quarter: 2012Q2

REPORT INFORMATION
  Report Type: 
  Country: None (occurrence: None)
  Receive Date: 20120507
  Receipt Date: 20120423
  Transmission Date: 20120825
  Serious: Yes (Life-Threatening, Hospitalization, Other)
  Sender: FDA-Public Use
  Company Number: US-MYLANLABS-2009AC000165

PATIENT
  Age: 55 Year
  Sex: Female
  Weight: 63 kg

DRUGS (17)
  1. ADVAIR DISKUS 100/50 [Concomitant]
  2. CARVEDILOL [Concomitant]
  3. LASIX [Concomitant]
     Route: 048
  4. LISINOPRIL [Concomitant]
     Route: 048
  5. ATENOLOL [Concomitant]
  6. PRILOSEC [Concomitant]
  7. IPRATROPIUM BROMIDE [Concomitant]
  8. ALBUTEROL [Concomitant]
     Dosage: 2 PUFFS Q6H
  9. COUMADIN [Concomitant]
  10. TOPROL-XL [Concomitant]
  11. ASPIRIN [Concomitant]
     Route: 048
  12. ATROVENT [Concomitant]
     Dosage: 2 PUFFS Q6H
  13. ACIPHEX [Concomitant]
  14. PREMARIN [Concomitant]
  15. COREG [Concomitant]
     Route: 048
  16. POTASSIUM CHLORIDE [Concomitant]
     Route: 048
  17. DIGOXIN [Suspect]
     Indication: CARDIAC FAILURE CONGESTIVE
     Route: 048
     Dates: start: 20040601, end: 20081124

REACTIONS (75)
  - MITRAL VALVE STENOSIS [None]
  - CARDIOMEGALY [None]
  - CARDIAC DISORDER [None]
  - DIPLOPIA [None]
  - ABDOMINAL PAIN [None]
  - GASTROOESOPHAGEAL REFLUX DISEASE [None]
  - MECHANICAL VENTILATION [None]
  - CHORDAE TENDINAE RUPTURE [None]
  - PYREXIA [None]
  - WHEEZING [None]
  - CATHETERISATION CARDIAC [None]
  - TRICUSPID VALVE INCOMPETENCE [None]
  - SUPRAVENTRICULAR TACHYCARDIA [None]
  - CONDITION AGGRAVATED [None]
  - ACUTE RESPIRATORY FAILURE [None]
  - APHASIA [None]
  - NOCTURNAL DYSPNOEA [None]
  - LABORATORY TEST ABNORMAL [None]
  - ABDOMINAL DISTENSION [None]
  - CARDIAC FAILURE CONGESTIVE [None]
  - CREPITATIONS [None]
  - MITRAL VALVE INCOMPETENCE [None]
  - DYSPNOEA [None]
  - ULTRASOUND ABDOMEN ABNORMAL [None]
  - LEFT ATRIAL DILATATION [None]
  - PERICARDIAL EFFUSION [None]
  - VENTRICULAR HYPOKINESIA [None]
  - ENDOTRACHEAL INTUBATION [None]
  - ASCITES [None]
  - DIZZINESS [None]
  - INJURY [None]
  - NOCTURIA [None]
  - PRODUCTIVE COUGH [None]
  - COUGH [None]
  - OEDEMA PERIPHERAL [None]
  - HEART VALVE REPLACEMENT [None]
  - ILL-DEFINED DISORDER [None]
  - RHEUMATIC HEART DISEASE [None]
  - DYSLIPIDAEMIA [None]
  - CHILLS [None]
  - RENAL FAILURE ACUTE [None]
  - LEFT VENTRICULAR FAILURE [None]
  - ARTERIOSCLEROSIS [None]
  - INFECTION [None]
  - CEREBROVASCULAR ACCIDENT [None]
  - TOOTHACHE [None]
  - CHOLELITHIASIS [None]
  - CARDIOMYOPATHY [None]
  - ATRIAL FIBRILLATION [None]
  - LEFT VENTRICULAR HYPERTROPHY [None]
  - CHRONIC OBSTRUCTIVE PULMONARY DISEASE [None]
  - PEPTIC ULCER [None]
  - OEDEMA [None]
  - ACCESSORY MUSCLE [None]
  - INTERSTITIAL LUNG DISEASE [None]
  - LEFT ATRIAL HYPERTROPHY [None]
  - NAUSEA [None]
  - MYOCARDIAL INFARCTION [None]
  - PULMONARY OEDEMA [None]
  - RESPIRATORY FAILURE [None]
  - HYPERTENSION [None]
  - CARDIAC MURMUR [None]
  - PNEUMONIA [None]
  - TACHYCARDIA [None]
  - RESPIRATORY DISTRESS [None]
  - AORTIC VALVE INCOMPETENCE [None]
  - CHEST X-RAY ABNORMAL [None]
  - VISION BLURRED [None]
  - ELECTROCARDIOGRAM ABNORMAL [None]
  - PULMONARY HYPERTENSION [None]
  - EXTRASYSTOLES [None]
  - PALPITATIONS [None]
  - HEART RATE INCREASED [None]
  - DEEP VEIN THROMBOSIS [None]
  - COMPUTERISED TOMOGRAM ABDOMEN ABNORMAL [None]
